FAERS Safety Report 21751707 (Version 1)
Quarter: 2022Q4

REPORT INFORMATION
  Report Type: Report from Study
  Country: US (occurrence: US)
  Receive Date: 20221220
  Receipt Date: 20221220
  Transmission Date: 20230113
  Serious: No
  Sender: FDA-Public Use
  Company Number: US-ABBVIE-4197488

PATIENT
  Sex: Male

DRUGS (1)
  1. SKYRIZI [Suspect]
     Active Substance: RISANKIZUMAB-RZAA
     Indication: Psoriasis
     Dosage: SKYRIZI 150 MG/ML INJECT 1 PEN SQ AT WEEK 0, WEEK 4, THEN EVERY 12 WEEKS THEREAFTER.
     Route: 058
     Dates: start: 20220914

REACTIONS (1)
  - Off label use [Unknown]
